FAERS Safety Report 9345631 (Version 1)
Quarter: 2013Q2

REPORT INFORMATION
  Report Type: Spontaneous
  Country: US (occurrence: US)
  Receive Date: 20130613
  Receipt Date: 20130613
  Transmission Date: 20140414
  Serious: Yes (Hospitalization)
  Sender: FDA-Public Use
  Company Number: US-BAYER-2013-070845

PATIENT
  Age: 18 Year
  Sex: Female
  Weight: 81 kg

DRUGS (6)
  1. YAZ [Suspect]
  2. YASMIN [Suspect]
  3. PROAIR HFA [Concomitant]
     Dosage: UNK
     Route: 045
     Dates: start: 20111006
  4. SEROQUEL [Concomitant]
     Dosage: 50 MG, UNK
     Dates: start: 20111006
  5. ALEVE TABLET [Concomitant]
     Dosage: UNK
     Dates: start: 20111006
  6. TREXIMET [Concomitant]
     Dosage: UNK
     Dates: start: 20111006

REACTIONS (1)
  - Pulmonary embolism [None]
